FAERS Safety Report 8319386-0 (Version None)
Quarter: 2012Q2

REPORT INFORMATION
  Report Type: 
  Country: None (occurrence: None)
  Receive Date: 20120427
  Receipt Date: 20120423
  Transmission Date: 20120825
  Serious: Yes (Death)
  Sender: FDA-Public Use
  Company Number: PHHY2012US035316

PATIENT
  Age: 43 Year
  Sex: Male

DRUGS (5)
  1. BENZODIAZEPINES [Suspect]
  2. ALPRAZOLAM [Suspect]
  3. METHADONE HCL [Suspect]
  4. QUETIAPINE [Suspect]
  5. IMIPRAMINE [Suspect]

REACTIONS (1)
  - COMPLETED SUICIDE [None]
